FAERS Safety Report 11136218 (Version 1)
Quarter: 2015Q2

REPORT INFORMATION
  Report Type: Spontaneous
  Country: ZA (occurrence: ZA)
  Receive Date: 20150526
  Receipt Date: 20150526
  Transmission Date: 20150821
  Serious: Yes (Other)
  Sender: FDA-Public Use
  Company Number: ZA-PFIZER INC-2015108654

PATIENT
  Age: 42 Year
  Sex: Male

DRUGS (5)
  1. ECSTASY [Concomitant]
     Active Substance: METHYLENEDIOXYMETHAMPHETAMINE
  2. DECA-DURABOLIN [Suspect]
     Active Substance: NANDROLONE DECANOATE
     Indication: MUSCLE BUILDING THERAPY
     Dosage: UP TO 1000 MG, WEEKLY
  3. TESTOSTERONE CIPIONATE [Suspect]
     Active Substance: TESTOSTERONE
     Indication: MUSCLE BUILDING THERAPY
     Dosage: UP TO 1000 MG, WEEKLY
  4. COCAINE [Concomitant]
     Active Substance: COCAINE
  5. DEPOT-TESTOSTERONE [Concomitant]
     Indication: BLOOD TESTOSTERONE ABNORMAL
     Dosage: 125 MG, EVERY 2 WEEKS

REACTIONS (7)
  - Intentional product misuse [Unknown]
  - Azoospermia [Unknown]
  - Hypertension [Unknown]
  - Secondary hypogonadism [Unknown]
  - Hypothyroidism [Unknown]
  - Drug abuse [Unknown]
  - Pulmonary embolism [Unknown]
